FAERS Safety Report 15709564 (Version 1)
Quarter: 2018Q4

REPORT INFORMATION
  Report Type: Spontaneous
  Country: IT (occurrence: IT)
  Receive Date: 20181211
  Receipt Date: 20181211
  Transmission Date: 20190205
  Serious: Yes (Hospitalization)
  Sender: FDA-Public Use
  Company Number: IT-PFIZER INC-2018507114

PATIENT
  Age: 2 Year
  Sex: Male

DRUGS (1)
  1. ZITROMAX [Suspect]
     Active Substance: AZITHROMYCIN
     Indication: ANTIBIOTIC PROPHYLAXIS
     Dosage: UNK
     Route: 048
     Dates: start: 20181010, end: 20181011

REACTIONS (3)
  - Skin exfoliation [Unknown]
  - Erythema [Unknown]
  - Angular cheilitis [Unknown]

NARRATIVE: CASE EVENT DATE: 20181011
